FAERS Safety Report 20827015 (Version 3)
Quarter: 2025Q4

REPORT INFORMATION
  Report Type: Spontaneous
  Country: JP (occurrence: JP)
  Receive Date: 20220513
  Receipt Date: 20251118
  Transmission Date: 20260117
  Serious: Yes (Hospitalization, Other)
  Sender: GLAXOSMITHKLINE
  Company Number: JP-GLAXOSMITHKLINE-JP2022JPN075884

PATIENT
  Age: 21 Year
  Sex: Female

DRUGS (3)
  1. LAMICTAL [Suspect]
     Active Substance: LAMOTRIGINE
     Indication: Idiopathic generalised epilepsy
     Dosage: 15.6 G (156 TABLETS OF 100 MG)
  2. LEVETIRACETAM [Suspect]
     Active Substance: LEVETIRACETAM
     Indication: Idiopathic generalised epilepsy
     Dosage: 14 G (56 TABLETS OF 250 MG)
  3. CLONAZEPAM [Suspect]
     Active Substance: CLONAZEPAM
     Indication: Idiopathic generalised epilepsy
     Dosage: 15 MG (30 TABLETS OF 0.5 MG)

REACTIONS (9)
  - Depressed level of consciousness [Recovered/Resolved]
  - Sinus tachycardia [Unknown]
  - Electrocardiogram QT prolonged [Unknown]
  - Generalised tonic-clonic seizure [Unknown]
  - Coma [Unknown]
  - Altered state of consciousness [Unknown]
  - Seizure [Unknown]
  - Toxicity to various agents [Unknown]
  - Overdose [Unknown]
